FAERS Safety Report 13225169 (Version 1)
Quarter: 2017Q1

REPORT INFORMATION
  Report Type: Other
  Country: DE (occurrence: DE)
  Receive Date: 20170213
  Receipt Date: 20170213
  Transmission Date: 20170428
  Serious: Yes (Congenital Anomaly, Other)
  Sender: FDA-Public Use
  Company Number: DE-LUPIN PHARMACEUTICALS INC.-E2B_00007319

PATIENT
  Age: 1 Day
  Sex: Male
  Weight: 3.1 kg

DRUGS (10)
  1. ATOSIL TROPFEN [Concomitant]
     Indication: SLEEP DISORDER
     Route: 064
     Dates: start: 20160111, end: 20160111
  2. LEVODOPA [Concomitant]
     Active Substance: LEVODOPA
     Indication: RESTLESS LEGS SYNDROME
     Route: 064
  3. OMEPRAZOL [Concomitant]
     Active Substance: OMEPRAZOLE
     Indication: DYSPEPSIA
     Route: 064
  4. SERTRALINE [Suspect]
     Active Substance: SERTRALINE HYDROCHLORIDE
     Indication: DEPRESSION
     Route: 064
     Dates: start: 20151128, end: 20160815
  5. FOLIO [Concomitant]
     Active Substance: FOLIC ACID
     Indication: PROPHYLAXIS OF NEURAL TUBE DEFECT
     Route: 064
  6. NAUSEMA [Concomitant]
     Indication: NAUSEA
     Route: 064
  7. RENNIE [Concomitant]
     Active Substance: MAGNESIUM CARBONATE
     Indication: DYSPEPSIA
     Route: 064
  8. RIOPAN [Concomitant]
     Active Substance: MAGALDRATE
     Indication: DYSPEPSIA
     Dosage: 4 OR 5 TIMES ONLY
     Route: 064
  9. AGYRAX [Concomitant]
     Active Substance: MECLIZINE HYDROCHLORIDE
     Indication: NAUSEA
     Route: 064
  10. FERRLECIT 62.5 MG [Concomitant]
     Indication: IRON DEFICIENCY
     Dosage: 18 INJECTIONS IN TOTAL
     Route: 064

REACTIONS (6)
  - Haemolysis [Unknown]
  - Respiratory disorder neonatal [Recovered/Resolved]
  - Hyperbilirubinaemia neonatal [Recovered/Resolved]
  - Foetal exposure during pregnancy [Unknown]
  - Atrial septal defect [Unknown]
  - Anaemia [Recovering/Resolving]

NARRATIVE: CASE EVENT DATE: 20160815
